FAERS Safety Report 10467199 (Version 6)
Quarter: 2015Q2

REPORT INFORMATION
  Report Type: Spontaneous
  Country: US (occurrence: US)
  Receive Date: 20140922
  Receipt Date: 20150601
  Transmission Date: 20150821
  Serious: Yes (Death, Hospitalization, Other)
  Sender: FDA-Public Use
  Company Number: US-MERCK-1409USA009862

PATIENT
  Sex: Male
  Weight: 100.23 kg

DRUGS (3)
  1. JANUVIA [Suspect]
     Active Substance: SITAGLIPTIN PHOSPHATE
     Indication: TYPE 2 DIABETES MELLITUS
     Dosage: 100 MG, QD
     Route: 048
     Dates: start: 20100609, end: 20130208
  2. BYETTA [Suspect]
     Active Substance: EXENATIDE
     Indication: TYPE 2 DIABETES MELLITUS
     Dosage: 5 MICROGRAM, BID
     Dates: start: 20110915, end: 20111110
  3. BYETTA [Suspect]
     Active Substance: EXENATIDE
     Dosage: 10 MICROGRAM, BID
     Dates: start: 20110915, end: 20120728

REACTIONS (76)
  - Pancreatic carcinoma metastatic [Fatal]
  - Hepatic steatosis [Unknown]
  - Vision blurred [Unknown]
  - Erectile dysfunction [Unknown]
  - Pericardial effusion [Unknown]
  - Haemoglobin decreased [Unknown]
  - Splenic infarction [Unknown]
  - White blood cell count increased [Unknown]
  - Red blood cell count decreased [Unknown]
  - Hiatus hernia [Unknown]
  - Loss of consciousness [Unknown]
  - Urinary incontinence [Unknown]
  - Deep vein thrombosis [Unknown]
  - Aphasia [Unknown]
  - Diplopia [Unknown]
  - Joint swelling [Unknown]
  - Thrombophlebitis superficial [Unknown]
  - Carbon dioxide increased [Unknown]
  - Red cell distribution width increased [Unknown]
  - Somogyi phenomenon [Unknown]
  - Anxiety [Unknown]
  - Haemorrhoidal haemorrhage [Unknown]
  - Thrombophlebitis superficial [Unknown]
  - Blood calcium decreased [Unknown]
  - Spondylitis [Unknown]
  - Haematocrit decreased [Unknown]
  - Unresponsive to stimuli [Unknown]
  - Faecal incontinence [Unknown]
  - Tinnitus [Unknown]
  - Palmar erythema [Unknown]
  - Lymphocyte count decreased [Unknown]
  - Neck pain [Unknown]
  - Intervertebral disc degeneration [Unknown]
  - Spinal osteoarthritis [Unknown]
  - Creatinine renal clearance decreased [Unknown]
  - Deafness [Unknown]
  - Pyelocaliectasis [Unknown]
  - Gastrointestinal motility disorder [Unknown]
  - Increased tendency to bruise [Unknown]
  - Splenomegaly [Unknown]
  - Central venous pressure increased [Unknown]
  - Cardiac hypertrophy [Unknown]
  - Blood potassium decreased [Unknown]
  - Protein total decreased [Unknown]
  - Fatigue [Unknown]
  - Nightmare [Unknown]
  - Sleep terror [Unknown]
  - Fall [Unknown]
  - Head injury [Unknown]
  - Pain [Unknown]
  - Blood creatinine increased [Unknown]
  - Adverse drug reaction [Unknown]
  - Pulmonary mass [Unknown]
  - Lip ulceration [Unknown]
  - Neutrophil count increased [Unknown]
  - Blood sodium decreased [Unknown]
  - Blood albumin decreased [Unknown]
  - Diabetes mellitus inadequate control [Unknown]
  - Atelectasis [Unknown]
  - Neuropathy peripheral [Unknown]
  - Renal cyst [Unknown]
  - Gingival bleeding [Unknown]
  - Cardiovascular insufficiency [Unknown]
  - Varicose vein [Unknown]
  - Blood urea increased [Unknown]
  - Platelet count decreased [Unknown]
  - Balance disorder [Unknown]
  - Peripheral swelling [Unknown]
  - Monocyte count increased [Unknown]
  - Thyroid disorder [Unknown]
  - Hernia [Unknown]
  - Hepatic cancer metastatic [Unknown]
  - Metastases to spleen [Unknown]
  - Pulmonary embolism [Unknown]
  - Skin abrasion [Unknown]
  - Cardiac disorder [Unknown]

NARRATIVE: CASE EVENT DATE: 2011
